FAERS Safety Report 10100347 (Version 2)
Quarter: 2015Q1

REPORT INFORMATION
  Report Type: Report from Study
  Country: VE (occurrence: VE)
  Receive Date: 20140423
  Receipt Date: 20150213
  Transmission Date: 20150720
  Serious: Yes (Death)
  Sender: FDA-Public Use
  Company Number: VE-ABBVIE-14K-178-1228961-00

PATIENT
  Age: 53 Year
  Sex: Male

DRUGS (2)
  1. ZEMPLAR [Suspect]
     Active Substance: PARICALCITOL
     Indication: NEPHROPATHY
  2. ZEMPLAR [Suspect]
     Active Substance: PARICALCITOL
     Indication: RENAL FAILURE
     Route: 042
     Dates: start: 201305

REACTIONS (1)
  - Cardiovascular disorder [Fatal]

NARRATIVE: CASE EVENT DATE: 20140125
